FAERS Safety Report 14343743 (Version 3)
Quarter: 2018Q2

REPORT INFORMATION
  Report Type: Report from Study
  Country: DE (occurrence: DE)
  Receive Date: 20180102
  Receipt Date: 20180625
  Transmission Date: 20180711
  Serious: Yes (Hospitalization)
  Sender: FDA-Public Use
  Company Number: DE-PFIZER INC-2017555723

PATIENT
  Age: 74 Year
  Sex: Female
  Weight: 60 kg

DRUGS (34)
  1. ABRAXANE [Suspect]
     Active Substance: PACLITAXEL
     Dosage: 100 MG, WEEKLY
     Route: 041
     Dates: start: 20170216
  2. ABRAXANE [Suspect]
     Active Substance: PACLITAXEL
     Dosage: 100 MG, WEEKLY
     Route: 041
     Dates: start: 20170309, end: 20170309
  3. ABRAXANE [Suspect]
     Active Substance: PACLITAXEL
     Dosage: 100 MG, WEEKLY
     Route: 041
     Dates: start: 20170330, end: 20170629
  4. RANITIC [Concomitant]
     Active Substance: RANITIDINE HYDROCHLORIDE
     Indication: PROPHYLAXIS
     Dosage: 50 MG, UNK
     Route: 041
     Dates: start: 20170216, end: 20170629
  5. CARBOPLATIN. [Suspect]
     Active Substance: CARBOPLATIN
     Dosage: 300 MG*MIN/ML, CYCLIC
     Route: 041
     Dates: start: 20170216, end: 20170629
  6. ABRAXANE [Suspect]
     Active Substance: PACLITAXEL
     Dosage: 100 MG, WEEKLY
     Route: 041
     Dates: start: 20170330, end: 20170629
  7. DEXAMETHASONE. [Concomitant]
     Active Substance: DEXAMETHASONE
     Dosage: 4 MG, UNK
     Route: 048
     Dates: start: 20170216, end: 20170703
  8. ALOXI [Concomitant]
     Active Substance: PALONOSETRON HYDROCHLORIDE
     Indication: PROPHYLAXIS
     Dosage: 250 UG, UNK
     Route: 041
     Dates: start: 20170406, end: 20170629
  9. KEVATRIL [Concomitant]
     Active Substance: GRANISETRON HYDROCHLORIDE
     Indication: PROPHYLAXIS
     Dosage: 1 MG, UNK
     Route: 041
     Dates: start: 20170216, end: 20170330
  10. ABRAXANE [Suspect]
     Active Substance: PACLITAXEL
     Dosage: 150 MG, WEEKLY
     Route: 041
     Dates: start: 20170309, end: 20170309
  11. ABRAXANE [Suspect]
     Active Substance: PACLITAXEL
     Dosage: 100 MG, WEEKLY
     Route: 041
     Dates: start: 20170309, end: 20170309
  12. ABRAXANE [Suspect]
     Active Substance: PACLITAXEL
     Dosage: 100 MG, WEEKLY
     Route: 041
     Dates: start: 20170330, end: 20170629
  13. CLEXANE [Concomitant]
     Active Substance: ENOXAPARIN SODIUM
     Indication: VENA CAVA THROMBOSIS
     Dosage: 1.2 ML, 1X/DAY
     Route: 058
     Dates: start: 201701, end: 201707
  14. ABRAXANE [Suspect]
     Active Substance: PACLITAXEL
     Dosage: 150 MG, WEEKLY
     Route: 041
     Dates: end: 20170413
  15. ABRAXANE [Suspect]
     Active Substance: PACLITAXEL
     Dosage: 100 MG, WEEKLY
     Route: 041
     Dates: start: 20170309, end: 20170309
  16. MCP [Concomitant]
     Active Substance: METOCLOPRAMIDE HYDROCHLORIDE
     Indication: PROPHYLAXIS
     Dosage: 10 MG, UNK
     Route: 048
     Dates: start: 20170216, end: 2017
  17. CARBOPLATIN. [Suspect]
     Active Substance: CARBOPLATIN
     Indication: NON-SMALL CELL LUNG CANCER
     Dosage: 3 MG*MIN/ML, CYCLIC
     Route: 041
     Dates: start: 20170216, end: 20170629
  18. ABRAXANE [Suspect]
     Active Substance: PACLITAXEL
     Dosage: 150 MG, WEEKLY
     Route: 041
     Dates: end: 20170629
  19. ABRAXANE [Suspect]
     Active Substance: PACLITAXEL
     Dosage: 100 MG, WEEKLY
     Route: 041
     Dates: start: 20170216
  20. ABRAXANE [Suspect]
     Active Substance: PACLITAXEL
     Dosage: 100 MG, WEEKLY
     Route: 041
     Dates: start: 20170309, end: 20170309
  21. ABRAXANE [Suspect]
     Active Substance: PACLITAXEL
     Dosage: 100 MG, WEEKLY
     Route: 041
     Dates: start: 20170330, end: 20170629
  22. FENISTIL [Concomitant]
     Active Substance: DIMETHINDENE
     Indication: PROPHYLAXIS
     Dosage: 4 MG, UNK
     Route: 041
     Dates: start: 20170216, end: 20170629
  23. SIMVASTATIN. [Concomitant]
     Active Substance: SIMVASTATIN
     Indication: PROPHYLAXIS
     Dosage: 20 MG, 1X/DAY
     Route: 048
     Dates: end: 2017
  24. METOPROLOL. [Concomitant]
     Active Substance: METOPROLOL
     Indication: ESSENTIAL HYPERTENSION
     Dosage: 100 MG, 1X/DAY
     Route: 048
     Dates: end: 2017
  25. SEVREDOL [Concomitant]
     Active Substance: MORPHINE
     Indication: NON-CARDIAC CHEST PAIN
     Dosage: 10 MG, UNK
     Route: 048
  26. ABRAXANE [Suspect]
     Active Substance: PACLITAXEL
     Indication: NON-SMALL CELL LUNG CANCER
     Dosage: 150 MG, WEEKLY
     Route: 041
     Dates: start: 20170216, end: 20170330
  27. ABRAXANE [Suspect]
     Active Substance: PACLITAXEL
     Dosage: 100 MG, WEEKLY
     Route: 041
     Dates: start: 20170216
  28. DEXAMETHASONE. [Concomitant]
     Active Substance: DEXAMETHASONE
     Indication: PROPHYLAXIS
     Dosage: 2 MG, 1X/DAY
     Route: 048
     Dates: start: 20170215
  29. PANTOPRAZOLE [Concomitant]
     Active Substance: PANTOPRAZOLE
     Indication: GASTROOESOPHAGEAL REFLUX DISEASE
     Dosage: 20 MG, 1X/DAY
     Route: 048
     Dates: end: 2017
  30. SOLU DECORTIN [Concomitant]
     Active Substance: PREDNISOLONE SODIUM SUCCINATE
     Indication: PROPHYLAXIS
     Dosage: 100 MG, UNK
     Route: 041
     Dates: start: 20170216, end: 20170629
  31. NOVALGIN [Concomitant]
     Indication: MUSCULOSKELETAL CHEST PAIN
     Dosage: 500 MG, UNK
     Route: 048
     Dates: end: 2017
  32. ABRAXANE [Suspect]
     Active Substance: PACLITAXEL
     Dosage: 100 MG, WEEKLY
     Route: 041
     Dates: start: 20170216
  33. DEXAMETHASONE. [Concomitant]
     Active Substance: DEXAMETHASONE
     Dosage: 4 MG, UNK
     Route: 048
     Dates: start: 20170215
  34. PANTOPRAZOLE [Concomitant]
     Active Substance: PANTOPRAZOLE
     Dosage: 40 MG, 1X/DAY
     Route: 048
     Dates: end: 2017

REACTIONS (5)
  - Asthenia [Recovered/Resolved]
  - Dizziness [Recovered/Resolved]
  - Fatigue [Recovered/Resolved]
  - Alopecia [Recovered/Resolved]
  - Mucosal inflammation [Recovered/Resolved]

NARRATIVE: CASE EVENT DATE: 20170317
